FAERS Safety Report 5382012-7 (Version None)
Quarter: 2007Q3

REPORT INFORMATION
  Report Type: 
  Country: None (occurrence: None)
  Receive Date: 20070709
  Receipt Date: 20070702
  Transmission Date: 20080115
  Serious: Yes (Hospitalization)
  Sender: FDA-Public Use
  Company Number: B0478184A

PATIENT
  Age: 40 Year
  Sex: Male

DRUGS (2)
  1. KIVEXA [Suspect]
     Indication: HIV INFECTION
     Dates: start: 20070616, end: 20070627
  2. FOSAMPRENAVIR [Suspect]
     Indication: HIV INFECTION
     Dates: start: 20070616, end: 20070627

REACTIONS (4)
  - DRUG HYPERSENSITIVITY [None]
  - FEBRILE NEUTROPENIA [None]
  - RASH [None]
  - SKIN REACTION [None]
